FAERS Safety Report 7734837-8 (Version None)
Quarter: 2011Q3

REPORT INFORMATION
  Report Type: 
  Country: None (occurrence: None)
  Receive Date: 20110907
  Receipt Date: 20110901
  Transmission Date: 20111222
  Serious: Yes (Hospitalization)
  Sender: FDA-Public Use
  Company Number: IT-PFIZER INC-2007017351

PATIENT
  Age: 29 Year
  Sex: Female
  Weight: 76 kg

DRUGS (5)
  1. CO-EFFERALGAN [Concomitant]
     Route: 048
     Dates: start: 20061003
  2. RABEPRAZOLE SODIUM [Concomitant]
     Route: 048
     Dates: start: 20061221
  3. LEVOTHYROXINE SODIUM [Concomitant]
     Route: 048
     Dates: start: 20061220
  4. SUNITINIB MALATE [Suspect]
     Route: 048
     Dates: start: 20051107, end: 20061114
  5. SUNITINIB MALATE [Suspect]
     Dosage: 37.5 MG, (25MG  PLUS 12.5MG) 1X/DAY
     Route: 048
     Dates: start: 20061128, end: 20070110

REACTIONS (2)
  - DYSPNOEA [None]
  - EJECTION FRACTION DECREASED [None]
